FAERS Safety Report 15381892 (Version 2)
Quarter: 2019Q3

REPORT INFORMATION
  Report Type: Spontaneous
  Country: US (occurrence: US)
  Receive Date: 20180913
  Receipt Date: 20190912
  Transmission Date: 20191004
  Serious: No
  Sender: FDA-Public Use
  Company Number: US-ASTELLAS-2018US006839

PATIENT
  Sex: Male

DRUGS (1)
  1. XTANDI [Suspect]
     Active Substance: ENZALUTAMIDE
     Indication: PROSTATE CANCER
     Route: 065
     Dates: start: 20180202

REACTIONS (5)
  - Night sweats [Not Recovered/Not Resolved]
  - Decreased appetite [Unknown]
  - Product dispensing error [Unknown]
  - Nightmare [Not Recovered/Not Resolved]
  - Weight decreased [Unknown]
